FAERS Safety Report 4861123-6 (Version None)
Quarter: 2005Q4

REPORT INFORMATION
  Report Type: 
  Country: None (occurrence: None)
  Receive Date: 20051220
  Receipt Date: 20051219
  Transmission Date: 20060501
  Serious: Yes (Other)
  Sender: FDA-Public Use
  Company Number: GB-GILEAD-2005-0009033

PATIENT
  Sex: Male

DRUGS (5)
  1. TRUVADA [Suspect]
     Route: 048
  2. FUZEON [Suspect]
     Route: 058
  3. RITONAVIR [Suspect]
     Route: 048
  4. TIPRANAVIR [Suspect]
     Route: 048
  5. DAPSONE [Concomitant]
     Route: 048

REACTIONS (1)
  - TINNITUS [None]
